FAERS Safety Report 8512833 (Version 5)
Quarter: 2013Q2

REPORT INFORMATION
  Report Type: Spontaneous
  Country: US (occurrence: US)
  Receive Date: 20120413
  Receipt Date: 20130411
  Transmission Date: 20140414
  Serious: No
  Sender: FDA-Public Use
  Company Number: US-ASTRAZENECA-2011SE57070

PATIENT
  Age: 58 Year
  Sex: Female
  Weight: 74.8 kg

DRUGS (9)
  1. NEXIUM [Suspect]
     Indication: CHEST PAIN
     Dosage: DAILY
     Route: 048
     Dates: start: 2009
  2. NEXIUM [Suspect]
     Indication: CHEST PAIN
     Dosage: AT NIGHT
     Route: 048
  3. NEXIUM [Suspect]
     Indication: CHEST PAIN
     Dosage: TWICE DAILY
     Route: 048
  4. NEXIUM [Suspect]
     Indication: CHEST PAIN
     Route: 048
     Dates: start: 2009, end: 2009
  5. NEXIUM [Suspect]
     Indication: CHEST PAIN
     Route: 048
     Dates: start: 2011, end: 2011
  6. NEUROLOGY MEDICINES [Concomitant]
  7. TEGRETOL [Concomitant]
     Indication: CONVULSION
  8. CAMPRIL [Concomitant]
     Indication: CONVULSION
  9. KEPPRA [Concomitant]
     Indication: CONVULSION

REACTIONS (13)
  - Joint stiffness [Unknown]
  - Rheumatoid arthritis [Unknown]
  - Joint swelling [Unknown]
  - Weight decreased [Unknown]
  - Joint swelling [Unknown]
  - Swelling [Unknown]
  - Asthenia [Unknown]
  - Bone disorder [Unknown]
  - Muscle disorder [Unknown]
  - Myalgia [Recovering/Resolving]
  - Arthralgia [Recovering/Resolving]
  - Local swelling [Unknown]
  - Off label use [Unknown]
